FAERS Safety Report 7127366-6 (Version None)
Quarter: 2010Q4

REPORT INFORMATION
  Report Type: 
  Country: None (occurrence: None)
  Receive Date: 20101129
  Receipt Date: 20100517
  Transmission Date: 20110411
  Serious: No
  Sender: FDA-Public Use
  Company Number: US-PFIZER INC-2010061892

PATIENT
  Sex: Male
  Weight: 65.76 kg

DRUGS (3)
  1. VIAGRA [Suspect]
     Indication: ERECTILE DYSFUNCTION
     Dosage: 4 MG, UNK
     Route: 048
  2. INSULIN [Concomitant]
     Indication: DIABETES MELLITUS
     Dosage: UNK
  3. LIPITOR [Concomitant]
     Indication: CARDIAC DISORDER
     Dosage: UNK, DAILY
     Route: 048

REACTIONS (3)
  - DYSURIA [None]
  - PRURITUS [None]
  - RASH [None]
